FAERS Safety Report 14289537 (Version 1)
Quarter: 2017Q4

REPORT INFORMATION
  Report Type: Spontaneous
  Country: DE (occurrence: DE)
  Receive Date: 20171214
  Receipt Date: 20171214
  Transmission Date: 20180321
  Serious: Yes (Other)
  Sender: FDA-Public Use
  Company Number: PHHY2017DE181157

PATIENT
  Age: 26 Year
  Sex: Female

DRUGS (1)
  1. AMOXIHEXAL [Suspect]
     Active Substance: AMOXICILLIN
     Indication: BRONCHITIS
     Dosage: 1 DF, QD
     Route: 065

REACTIONS (6)
  - Abdominal pain lower [Unknown]
  - Vaginal infection [Unknown]
  - Cough [Unknown]
  - Musculoskeletal pain [Unknown]
  - Flank pain [Unknown]
  - Visual impairment [Unknown]
